FAERS Safety Report 18324576 (Version 1)
Quarter: 2020Q3

REPORT INFORMATION
  Report Type: Spontaneous
  Country: US (occurrence: US)
  Receive Date: 20200929
  Receipt Date: 20200929
  Transmission Date: 20201103
  Serious: Yes (Other)
  Sender: FDA-Public Use
  Company Number: None

PATIENT
  Age: 49 Year
  Sex: Male
  Weight: 113.85 kg

DRUGS (1)
  1. CRESTOR [Suspect]
     Active Substance: ROSUVASTATIN CALCIUM
     Indication: BLOOD CHOLESTEROL
     Route: 048

REACTIONS (11)
  - Confusional state [None]
  - Chromaturia [None]
  - Arthralgia [None]
  - Product complaint [None]
  - Asthenia [None]
  - Fatigue [None]
  - Myalgia [None]
  - Pain in extremity [None]
  - Limb injury [None]
  - Amnesia [None]
  - Blood test abnormal [None]

NARRATIVE: CASE EVENT DATE: 20200921
